FAERS Safety Report 20345543 (Version 1)
Quarter: 2022Q1

REPORT INFORMATION
  Report Type: Spontaneous
  Country: US (occurrence: None)
  Receive Date: 20220114
  Receipt Date: 20220114
  Transmission Date: 20220423
  Serious: Yes (Life-Threatening, Hospitalization, Disabling, Other)
  Sender: FDA-Public Use
  Company Number: None

PATIENT
  Age: 48 Year
  Sex: Female
  Weight: 60.75 kg

DRUGS (7)
  1. ABILIFY [Suspect]
     Active Substance: ARIPIPRAZOLE
     Indication: Depression
     Route: 048
  2. ZYPREXA [Suspect]
     Active Substance: OLANZAPINE
  3. KLONOPIN [Suspect]
     Active Substance: CLONAZEPAM
  4. ATIVAN [Suspect]
     Active Substance: LORAZEPAM
  5. LITHIUM [Suspect]
     Active Substance: LITHIUM
  6. SEROQUEL [Suspect]
     Active Substance: QUETIAPINE FUMARATE
  7. VITAMIN D, C [Concomitant]

REACTIONS (4)
  - Akathisia [None]
  - Suicidal ideation [None]
  - Tardive dyskinesia [None]
  - Prescribed overdose [None]

NARRATIVE: CASE EVENT DATE: 20181225
